FAERS Safety Report 25210882 (Version 1)
Quarter: 2025Q2

REPORT INFORMATION
  Report Type: Spontaneous
  Country: US (occurrence: US)
  Receive Date: 20250417
  Receipt Date: 20250417
  Transmission Date: 20250716
  Serious: No
  Sender: PFIZER
  Company Number: US-PFIZER INC-202500078575

PATIENT
  Age: 55 Year
  Sex: Female

DRUGS (2)
  1. RIMEGEPANT [Suspect]
     Active Substance: RIMEGEPANT
     Indication: Migraine
     Dates: start: 2023
  2. RIMEGEPANT [Suspect]
     Active Substance: RIMEGEPANT
     Indication: Prophylaxis
     Dates: start: 202504

REACTIONS (1)
  - Chest pain [Unknown]

NARRATIVE: CASE EVENT DATE: 20250401
